FAERS Safety Report 19255027 (Version 1)
Quarter: 2021Q2

REPORT INFORMATION
  Report Type: Spontaneous
  Country: NL (occurrence: NL)
  Receive Date: 20210513
  Receipt Date: 20210513
  Transmission Date: 20210717
  Serious: Yes (Congenital Anomaly)
  Sender: FDA-Public Use
  Company Number: NL-TEVA-2021-NL-1909517

PATIENT
  Sex: Male

DRUGS (1)
  1. ARIPIPRAZOL TABLET 10MG / BRAND NAME NOT SPECIFIED [Suspect]
     Active Substance: ARIPIPRAZOLE
     Indication: PSYCHOTIC DISORDER
     Dosage: 10 MILLIGRAM DAILY; THERAPY START AND END DATE: ASKU
     Route: 065

REACTIONS (1)
  - Ventricular septal defect [Unknown]
